FAERS Safety Report 14232306 (Version 1)
Quarter: 2017Q4

REPORT INFORMATION
  Report Type: Spontaneous
  Country: US (occurrence: US)
  Receive Date: 20171128
  Receipt Date: 20171128
  Transmission Date: 20180321
  Serious: No
  Sender: FDA-Public Use
  Company Number: US-BAYER-2017-222072

PATIENT
  Age: 53 Year
  Sex: Male
  Weight: 86 kg

DRUGS (4)
  1. BAYER ASPIRIN [Suspect]
     Active Substance: ASPIRIN
     Indication: CHONDROPATHY
  2. ALEVE TENS DEVICE DIRECT THERAPY UNIT [Suspect]
     Active Substance: DEVICE
     Indication: PAIN
     Dosage: 5-6 TIMES A DAY
     Dates: start: 20171111
  3. BAYER ASPIRIN [Suspect]
     Active Substance: ASPIRIN
     Indication: PAIN
     Dosage: UNK UNK, QD
     Route: 048
     Dates: start: 1969
  4. ALEVE [Suspect]
     Active Substance: NAPROXEN SODIUM
     Indication: PAIN
     Dosage: UNK UNK, QD (EVERY NIGHT)
     Route: 048

REACTIONS (8)
  - Product use in unapproved indication [None]
  - Dysphagia [Unknown]
  - Therapeutic product effective for unapproved indication [Unknown]
  - Gastrooesophageal reflux disease [Unknown]
  - Muscle spasms [Unknown]
  - Product use issue [None]
  - Throat tightness [Unknown]
  - Off label use [None]

NARRATIVE: CASE EVENT DATE: 20171111
